FAERS Safety Report 10556415 (Version 1)
Quarter: 2014Q4

REPORT INFORMATION
  Report Type: Report from Study
  Country: HU (occurrence: HU)
  Receive Date: 20141031
  Receipt Date: 20141031
  Transmission Date: 20150529
  Serious: Yes (Other)
  Sender: FDA-Public Use
  Company Number: HU-BRISTOL-MYERS SQUIBB COMPANY-21539127

PATIENT
  Age: 71 Year
  Sex: Male

DRUGS (1)
  1. KOMBOGLYZE [Suspect]
     Active Substance: METFORMIN HYDROCHLORIDE\SAXAGLIPTIN
     Indication: DIABETES MELLITUS
     Dosage: 2 DF: 2 TABLETS (FILM COATED).
     Dates: start: 201409, end: 20141007

REACTIONS (4)
  - Vomiting [Recovering/Resolving]
  - Chest pain [Recovering/Resolving]
  - Nausea [Recovering/Resolving]
  - Oesophageal pain [Recovering/Resolving]

NARRATIVE: CASE EVENT DATE: 201409
